FAERS Safety Report 21570763 (Version 1)
Quarter: 2022Q4

REPORT INFORMATION
  Report Type: Spontaneous
  Country: US (occurrence: US)
  Receive Date: 20221109
  Receipt Date: 20221109
  Transmission Date: 20230112
  Serious: No
  Sender: FDA-Public Use
  Company Number: US-002147023-NVSC2022US248469

PATIENT
  Sex: Female

DRUGS (3)
  1. KISQALI [Suspect]
     Active Substance: RIBOCICLIB
     Indication: Product used for unknown indication
     Dosage: 600 MG, BID (1 PILL FOR 7 DAYS)
     Route: 065
  2. KISQALI [Suspect]
     Active Substance: RIBOCICLIB
     Dosage: 600 MG, BID ( 2ND WEEK DOCTOR STATED TO TAKE 2 AND KEEP TAKING FOR 3RD WEEK)
     Route: 065
  3. LETROZOLE [Suspect]
     Active Substance: LETROZOLE
     Indication: Product used for unknown indication
     Dosage: UNK
     Route: 065

REACTIONS (8)
  - Influenza like illness [Unknown]
  - Neoplasm [Unknown]
  - Tremor [Unknown]
  - Gait disturbance [Unknown]
  - Nausea [Unknown]
  - Pyrexia [Unknown]
  - Rash papular [Unknown]
  - Incorrect dose administered [Unknown]
